FAERS Safety Report 12134862 (Version 1)
Quarter: 2016Q1

REPORT INFORMATION
  Report Type: Spontaneous
  Country: BR (occurrence: BR)
  Receive Date: 20160301
  Receipt Date: 20160301
  Transmission Date: 20160526
  Serious: Yes (Other)
  Sender: FDA-Public Use
  Company Number: BR-MYLANLABS-2016M1008668

PATIENT

DRUGS (7)
  1. VALPROIC ACID. [Concomitant]
     Active Substance: VALPROIC ACID
     Indication: BIPOLAR DISORDER
     Dosage: 1500 MG/DAY
     Route: 065
  2. CLONAZEPAM. [Suspect]
     Active Substance: CLONAZEPAM
     Indication: DRUG ABUSE
     Dosage: 4 MG/DAY
     Route: 065
  3. RISPERIDONE. [Concomitant]
     Active Substance: RISPERIDONE
     Indication: BIPOLAR DISORDER
     Dosage: 2 MG/DAY
     Route: 065
  4. BUPROPION. [Suspect]
     Active Substance: BUPROPION
     Indication: BIPOLAR DISORDER
     Dosage: 300 MG/DAY
     Route: 048
  5. BUPROPION. [Suspect]
     Active Substance: BUPROPION
     Indication: DRUG ABUSE
     Dosage: 2250 MG/DAY FOR 3 MONTHS
     Route: 048
  6. BUPROPION. [Suspect]
     Active Substance: BUPROPION
     Dosage: 450 MG/DAY
     Route: 048
  7. CLONAZEPAM. [Suspect]
     Active Substance: CLONAZEPAM
     Indication: BIPOLAR DISORDER
     Dosage: 20 MG/DAY
     Route: 065

REACTIONS (4)
  - Drug abuse [Unknown]
  - No adverse event [Recovered/Resolved]
  - Drug dependence [Unknown]
  - Intentional overdose [Unknown]
